FAERS Safety Report 15155900 (Version 1)
Quarter: 2018Q3

REPORT INFORMATION
  Report Type: Spontaneous
  Country: NL (occurrence: NL)
  Receive Date: 20180717
  Receipt Date: 20180717
  Transmission Date: 20181010
  Serious: Yes (Hospitalization)
  Sender: FDA-Public Use
  Company Number: NL-US WORLDMEDS, LLC-STA_00019555

PATIENT
  Age: 48 Year
  Sex: Male

DRUGS (14)
  1. APOMORPHINE HYDROCHLORIDE [Suspect]
     Active Substance: APOMORPHINE HYDROCHLORIDE
     Indication: PARKINSON^S DISEASE
     Dosage: 2.5 MG/ML FROM 8:00 TO 20:00 HR
     Route: 058
     Dates: start: 200903
  2. CLOZAPINE. [Concomitant]
     Active Substance: CLOZAPINE
     Indication: PARKINSON^S DISEASE
     Route: 048
  3. SOLU?CORTEF [Concomitant]
     Active Substance: HYDROCORTISONE SODIUM SUCCINATE
     Indication: PRODUCT USED FOR UNKNOWN INDICATION
     Dosage: 10MG/D AND 15 MG/D
     Route: 058
  4. MADOPAR [Concomitant]
     Active Substance: BENSERAZIDE HYDROCHLORIDE\LEVODOPA
     Indication: PARKINSON^S DISEASE
     Dosage: HBS 125 MG
     Route: 048
  5. BISACODYL. [Concomitant]
     Active Substance: BISACODYL
     Indication: CONSTIPATION
     Route: 048
  6. HYDROCORTISON [Concomitant]
     Active Substance: HYDROCORTISONE
     Indication: PRODUCT USED FOR UNKNOWN INDICATION
     Dosage: 10MG/G
     Route: 003
  7. TOLCAPONE. [Concomitant]
     Active Substance: TOLCAPONE
     Indication: PARKINSON^S DISEASE
     Route: 048
  8. MADOPAR [Concomitant]
     Active Substance: BENSERAZIDE HYDROCHLORIDE\LEVODOPA
     Indication: PARKINSON^S DISEASE
     Dosage: 100/25 MG, 5DD 1.5
     Route: 048
  9. PARACETAMOL [Concomitant]
     Active Substance: ACETAMINOPHEN
     Indication: PAIN
     Dosage: 500 MG
     Route: 048
  10. ZOLPIDEM [Concomitant]
     Active Substance: ZOLPIDEM\ZOLPIDEM TARTRATE
     Indication: INSOMNIA
     Route: 048
  11. DOMPERIDON [Concomitant]
     Active Substance: DOMPERIDONE
     Indication: NAUSEA
     Route: 048
  12. MAGNESIUMHYDROXIDE [Concomitant]
     Indication: CONSTIPATION
     Dosage: 724 MG 2DD2
     Route: 048
  13. RIVASTIGIMINE [Concomitant]
     Indication: DEMENTIA WITH LEWY BODIES
     Dosage: 9.5 MG/24 1DD1 AND 4.6 MG/24 1DD1
  14. PANTOPRAZOLE [Concomitant]
     Active Substance: PANTOPRAZOLE
     Indication: PRODUCT USED FOR UNKNOWN INDICATION
     Route: 048

REACTIONS (6)
  - Nausea [Unknown]
  - Vomiting [Unknown]
  - Injection site nodule [Unknown]
  - Disorientation [Unknown]
  - Abdominal distension [Unknown]
  - Yellow skin [Unknown]

NARRATIVE: CASE EVENT DATE: 200904
